FAERS Safety Report 4897866-8 (Version None)
Quarter: 2006Q1

REPORT INFORMATION
  Report Type: 
  Country: None (occurrence: None)
  Receive Date: 20060201
  Receipt Date: 20060124
  Transmission Date: 20060701
  Serious: Yes (Hospitalization)
  Sender: FDA-Public Use
  Company Number: JP-JPN-A200600311

PATIENT
  Sex: Male

DRUGS (16)
  1. VALTREX [Suspect]
     Indication: HERPES ZOSTER
     Dosage: 1000MG PER DAY
     Route: 048
     Dates: start: 20050601
  2. RADEN [Suspect]
     Indication: GASTRIC ULCER
     Dosage: 75MG PER DAY
     Route: 048
     Dates: start: 20040301, end: 20050601
  3. RADEN [Suspect]
     Dosage: 150MG TWICE PER DAY
     Route: 048
     Dates: start: 20050601
  4. ASPIRIN [Concomitant]
     Route: 048
  5. ARTIST [Concomitant]
     Route: 048
  6. ADONA (AC-17) [Concomitant]
     Route: 065
  7. NICHI E NATE [Concomitant]
     Route: 048
  8. CALTAN [Concomitant]
     Route: 048
  9. NORVASC [Concomitant]
     Route: 048
  10. CETILO [Concomitant]
     Route: 048
  11. SENNOSIDE [Concomitant]
     Route: 048
  12. D-ALFA [Concomitant]
     Route: 048
  13. KENTAN [Concomitant]
     Route: 048
  14. VOLTAREN [Concomitant]
     Route: 048
  15. EPOGIN [Concomitant]
  16. FESIN [Concomitant]
     Route: 042

REACTIONS (10)
  - ASPARTATE AMINOTRANSFERASE DECREASED [None]
  - BLOOD CREATININE INCREASED [None]
  - BLOOD POTASSIUM INCREASED [None]
  - BLOOD UREA INCREASED [None]
  - BLOOD URIC ACID DECREASED [None]
  - DEPRESSED LEVEL OF CONSCIOUSNESS [None]
  - DISORIENTATION [None]
  - GAIT DISTURBANCE [None]
  - PAIN [None]
  - WHITE BLOOD CELL COUNT DECREASED [None]
